FAERS Safety Report 9282899 (Version 1)
Quarter: 2013Q2

REPORT INFORMATION
  Report Type: Spontaneous
  Country: GB (occurrence: None)
  Receive Date: 20130503
  Receipt Date: 20130503
  Transmission Date: 20140414
  Serious: Yes (Disabling, Other)
  Sender: FDA-Public Use
  Company Number: AUR-APL-2013-03540

PATIENT
  Age: 92 Year
  Sex: Female

DRUGS (7)
  1. CIPROFLOXACIN [Suspect]
     Indication: BRONCHITIS
     Dosage: 3 DAILY DOSAGES OF 500 MG EACH.
     Route: 048
     Dates: start: 20130208
  2. AMITRIPTYLINE [Suspect]
  3. DIGOXIN [Concomitant]
  4. PREDNISOLONE [Concomitant]
  5. RAMIPRIL [Suspect]
  6. RISEDRONATE [Concomitant]
  7. TRAMADOL [Concomitant]

REACTIONS (3)
  - Tendon disorder [None]
  - Gait disturbance [None]
  - Pain [None]
